FAERS Safety Report 18805531 (Version 1)
Quarter: 2021Q1

REPORT INFORMATION
  Report Type: Spontaneous
  Country: US (occurrence: US)
  Receive Date: 20210128
  Receipt Date: 20210128
  Transmission Date: 20210419
  Serious: No
  Sender: FDA-Public Use
  Company Number: US-GALDERMA-US2020040611

PATIENT
  Age: 30 Year
  Sex: Female

DRUGS (3)
  1. DIFFERIN GEL [Suspect]
     Active Substance: ADAPALENE
     Indication: ACNE
     Dosage: 0.1%
     Route: 061
  2. DIFFERIN GEL [Suspect]
     Active Substance: ADAPALENE
     Indication: SCAR
  3. CETAPHIL [COSMETICS] [Suspect]
     Active Substance: COSMETICS
     Indication: PRODUCT USED FOR UNKNOWN INDICATION
     Route: 065

REACTIONS (3)
  - Skin exfoliation [Recovered/Resolved]
  - Chemical burn of skin [Recovered/Resolved]
  - Pain of skin [Recovered/Resolved]
